FAERS Safety Report 18305977 (Version 1)
Quarter: 2020Q3

REPORT INFORMATION
  Report Type: Spontaneous
  Country: US (occurrence: US)
  Receive Date: 20200923
  Receipt Date: 20200923
  Transmission Date: 20201103
  Serious: Yes (Hospitalization)
  Sender: FDA-Public Use
  Company Number: None

PATIENT
  Sex: Female

DRUGS (7)
  1. PROBI OTIC [Concomitant]
  2. MVI [Concomitant]
     Active Substance: VITAMINS
  3. HUMIRA [Suspect]
     Active Substance: ADALIMUMAB
     Indication: CROHN^S DISEASE
     Route: 058
     Dates: start: 20171009
  4. PREDNISONE. [Concomitant]
     Active Substance: PREDNISONE
  5. KETOROL AC [Concomitant]
  6. CALCIUM [Concomitant]
     Active Substance: CALCIUM
  7. LO LOESTRIN FE [Concomitant]
     Active Substance: ETHINYL ESTRADIOL\NORETHINDRONE ACETATE

REACTIONS (3)
  - Pain [None]
  - Constipation [None]
  - Corneal abrasion [None]

NARRATIVE: CASE EVENT DATE: 20200830
